FAERS Safety Report 7808594-0 (Version None)
Quarter: 2011Q4

REPORT INFORMATION
  Report Type: 
  Country: None (occurrence: None)
  Receive Date: 20111012
  Receipt Date: 20111010
  Transmission Date: 20120403
  Serious: No
  Sender: FDA-Public Use
  Company Number: US-PFIZER INC-2011240644

PATIENT
  Sex: Female
  Weight: 54.422 kg

DRUGS (1)
  1. IBUPROFEN (ADVIL) [Suspect]
     Indication: HEADACHE
     Dosage: UNK, 1X/DAY
     Route: 048
     Dates: start: 20111009

REACTIONS (3)
  - URTICARIA [None]
  - LIP SWELLING [None]
  - RASH [None]
